FAERS Safety Report 12741066 (Version 1)
Quarter: 2016Q3

REPORT INFORMATION
  Report Type: Spontaneous
  Country: US (occurrence: US)
  Receive Date: 20160914
  Receipt Date: 20160914
  Transmission Date: 20161109
  Serious: No
  Sender: FDA-Public Use
  Company Number: US-TEVA-271367USA

PATIENT
  Sex: Female

DRUGS (1)
  1. PANTOPRAZOLE SODIUM, DR TABLETS, 20MG AND 40 MG [Suspect]
     Active Substance: PANTOPRAZOLE SODIUM
     Indication: GASTROOESOPHAGEAL REFLUX DISEASE

REACTIONS (7)
  - Gastrooesophageal reflux disease [Unknown]
  - Incorrect dose administered [Unknown]
  - Intentional product use issue [Unknown]
  - Drug ineffective [Unknown]
  - Product substitution issue [Unknown]
  - Irritable bowel syndrome [Unknown]
  - Malaise [Unknown]
